FAERS Safety Report 20549110 (Version 1)
Quarter: 2022Q1

REPORT INFORMATION
  Report Type: Spontaneous
  Country: US (occurrence: US)
  Receive Date: 20220303
  Receipt Date: 20220303
  Transmission Date: 20220424
  Serious: Yes (Hospitalization)
  Sender: FDA-Public Use
  Company Number: US-CELGENE-USA-20220208296

PATIENT
  Age: 62 Year
  Sex: Male
  Weight: 51.756 kg

DRUGS (1)
  1. REVLIMID [Suspect]
     Active Substance: LENALIDOMIDE
     Indication: Plasma cell myeloma
     Dosage: 10 MILLIGRAM
     Route: 048
     Dates: start: 20220201

REACTIONS (2)
  - Hallucination [Unknown]
  - Haematemesis [Unknown]

NARRATIVE: CASE EVENT DATE: 20220223
